FAERS Safety Report 9700545 (Version 3)
Quarter: 2013Q4

REPORT INFORMATION
  Report Type: Spontaneous
  Country: JP (occurrence: JP)
  Receive Date: 20131121
  Receipt Date: 20131217
  Transmission Date: 20140711
  Serious: Yes (Other)
  Sender: FDA-Public Use
  Company Number: PHHY2013JP131902

PATIENT
  Age: 90 Year
  Sex: Female

DRUGS (4)
  1. FAMVIR [Suspect]
     Indication: HERPES ZOSTER
     Dosage: 500 MG, BID
     Route: 048
     Dates: start: 20131109, end: 20131115
  2. LOXONIN [Concomitant]
     Dosage: 180 MG, DAILY
     Route: 048
     Dates: start: 20131111, end: 20131125
  3. METHYCOBAL [Concomitant]
     Dosage: 1500 UG, DAILY
     Route: 048
     Dates: start: 20131115, end: 20131125
  4. CASAL [Concomitant]
     Dosage: 10 G, UNK
     Route: 061
     Dates: start: 20131109

REACTIONS (2)
  - Rhabdomyolysis [Recovered/Resolved]
  - Gait disturbance [Recovered/Resolved]
